FAERS Safety Report 11540571 (Version 1)
Quarter: 2015Q3

REPORT INFORMATION
  Report Type: Spontaneous
  Country: US (occurrence: US)
  Receive Date: 20150923
  Receipt Date: 20150923
  Transmission Date: 20151125
  Serious: Yes (Other)
  Sender: FDA-Public Use
  Company Number: US-BEH-2015050080

PATIENT
  Age: 42 Year
  Sex: Male

DRUGS (1)
  1. PRIVIGEN [Suspect]
     Active Substance: HUMAN IMMUNOGLOBULIN G
     Dosage: DOSE: EVERY COUPLE MONTHS FOR ALMOST 3 YEARS
     Dates: end: 20150320

REACTIONS (2)
  - Bone pain [Unknown]
  - Drug ineffective [Unknown]
